FAERS Safety Report 8010988-8 (Version None)
Quarter: 2011Q4

REPORT INFORMATION
  Report Type: 
  Country: None (occurrence: None)
  Receive Date: 20111228
  Receipt Date: 20111223
  Transmission Date: 20120403
  Serious: Yes (Other)
  Sender: FDA-Public Use
  Company Number: RU-PFIZER INC-2011304951

PATIENT
  Age: 67 Year
  Sex: Female

DRUGS (4)
  1. ARIFON [Concomitant]
     Indication: HYPERTENSION
     Dosage: UNK
     Route: 048
  2. PRESTARIUM [Concomitant]
     Indication: HYPERTENSION
     Dosage: UNK
     Route: 048
  3. LEVOTHYROXINE SODIUM [Concomitant]
     Indication: THYROID HORMONE REPLACEMENT THERAPY
     Dosage: UNK
     Route: 048
  4. XALATAN [Suspect]
     Indication: GLAUCOMA
     Dosage: 1 GTT INTO EACH EYE, 1X/DAY, BEFORE NIGHT
     Route: 047
     Dates: start: 20111214

REACTIONS (1)
  - TACHYCARDIA [None]
